FAERS Safety Report 21561588 (Version 5)
Quarter: 2022Q4

REPORT INFORMATION
  Report Type: Spontaneous
  Country: US (occurrence: US)
  Receive Date: 20221107
  Receipt Date: 20221229
  Transmission Date: 20230113
  Serious: Yes (Other)
  Sender: FDA-Public Use
  Company Number: US-PFIZER INC-202201279684

PATIENT
  Age: 79 Year
  Sex: Male
  Weight: 83.91 kg

DRUGS (8)
  1. PAXLOVID [Suspect]
     Active Substance: NIRMATRELVIR\RITONAVIR
     Indication: COVID-19 treatment
     Dosage: 3 DF, 2X/DAY (TAKES 3 IN THE MORNING AND TAKES 3 IN THE EVENING/PAXLOVID 300 MG; 100MG)
     Dates: start: 20221103, end: 20221107
  2. VITAMIN D NOS [Concomitant]
     Active Substance: VITAMIN D NOS
     Dosage: UNK
     Dates: start: 2010
  3. VITAMIN C [Concomitant]
     Active Substance: ASCORBIC ACID
     Dosage: UNK
     Dates: start: 2008
  4. LISINOPRIL [Concomitant]
     Active Substance: LISINOPRIL
     Indication: Blood pressure abnormal
     Dosage: 5 MG AT 2.5 MG ORALLY 1X/DAY
     Dates: start: 2000
  5. LISINOPRIL [Concomitant]
     Active Substance: LISINOPRIL
     Indication: Hypertension
     Dosage: 2.5 MG, 1X/DAY (LISINOPRIL 2.5MG (CUT IN HALF) ONCE A DAY)
     Dates: start: 2002
  6. LISINOPRIL [Concomitant]
     Active Substance: LISINOPRIL
     Dosage: 1.25 MG, 1X/DAY
     Route: 048
     Dates: end: 202211
  7. LISINOPRIL [Concomitant]
     Active Substance: LISINOPRIL
     Dosage: 1.25 MG, 1X/DAY
     Route: 048
     Dates: start: 202211
  8. AMOXICILLIN [Concomitant]
     Active Substance: AMOXICILLIN
     Indication: Cough
     Dosage: UNK

REACTIONS (21)
  - Cerebrovascular accident [Unknown]
  - Blood pressure increased [Unknown]
  - Oropharyngeal pain [Recovered/Resolved]
  - Therapeutic response unexpected [Unknown]
  - Headache [Not Recovered/Not Resolved]
  - Poor quality sleep [Unknown]
  - Dry eye [Not Recovered/Not Resolved]
  - Disease recurrence [Not Recovered/Not Resolved]
  - Dysgeusia [Unknown]
  - Diarrhoea [Unknown]
  - Dyslexia [Unknown]
  - Dry mouth [Unknown]
  - Influenza [Recovering/Resolving]
  - Asthenia [Recovering/Resolving]
  - Constipation [Unknown]
  - Cough [Recovering/Resolving]
  - Nightmare [Unknown]
  - Taste disorder [Unknown]
  - Peripheral coldness [Not Recovered/Not Resolved]
  - Middle insomnia [Unknown]
  - Incorrect product administration duration [Unknown]

NARRATIVE: CASE EVENT DATE: 20221101
